FAERS Safety Report 9874789 (Version 4)
Quarter: 2014Q1

REPORT INFORMATION
  Report Type: Spontaneous
  Country: CH (occurrence: CH)
  Receive Date: 20140206
  Receipt Date: 20140318
  Transmission Date: 20141002
  Serious: Yes (Death)
  Sender: FDA-Public Use
  Company Number: PHHY2014CH012887

PATIENT
  Sex: Female

DRUGS (5)
  1. EXJADE [Suspect]
     Indication: SICKLE CELL ANAEMIA
     Dosage: 500 MG, PER DAY (3 WEEKS BEFORE CHRISTMAS)
     Dates: start: 20131201
  2. REVAXIS [Suspect]
     Dosage: ONCE ON 5 DEC 2013
     Route: 065
     Dates: start: 20131205
  3. PRIORIX [Suspect]
     Dosage: ONCE ON 5 DEC 2013
     Route: 065
     Dates: start: 20131205
  4. PENCILLIN [Concomitant]
     Dosage: UNK UKN, UNK
  5. OSPEN [Concomitant]
     Dosage: 500000 IE, 2X PER DAY

REACTIONS (1)
  - Cerebral haemorrhage [Fatal]
